FAERS Safety Report 6142999-1 (Version None)
Quarter: 2009Q2

REPORT INFORMATION
  Report Type: 
  Country: None (occurrence: None)
  Receive Date: 20090403
  Receipt Date: 20090325
  Transmission Date: 20091009
  Serious: Yes (Death, Hospitalization)
  Sender: FDA-Public Use
  Company Number: PH-PFIZER INC-2009160370

PATIENT

DRUGS (1)
  1. NORVASC [Suspect]
     Dosage: UNK
     Dates: start: 20071001

REACTIONS (2)
  - DISLOCATION OF VERTEBRA [None]
  - MYOCARDIAL INFARCTION [None]
